FAERS Safety Report 9798808 (Version 1)
Quarter: 2014Q1

REPORT INFORMATION
  Report Type: Spontaneous
  Country: US (occurrence: US)
  Receive Date: 20140106
  Receipt Date: 20140106
  Transmission Date: 20141002
  Serious: No
  Sender: FDA-Public Use
  Company Number: US-GILEAD-2010-0032249

PATIENT
  Age: 49 Year
  Sex: Female
  Weight: 42.18 kg

DRUGS (12)
  1. LETAIRIS [Suspect]
     Indication: PULMONARY ARTERIAL HYPERTENSION
     Route: 048
     Dates: start: 20100618
  2. SYMBICORT [Concomitant]
  3. ACIPHEX [Concomitant]
  4. AMITIZA [Concomitant]
  5. PREDNISONE [Concomitant]
  6. URSO FORTE [Concomitant]
  7. SYNTHROID [Concomitant]
  8. FOSAMAX [Concomitant]
  9. CYCLOSPORINE [Concomitant]
  10. VITAMIN D [Concomitant]
  11. KLOR CON [Concomitant]
  12. FOLIC ACID [Concomitant]

REACTIONS (1)
  - Abdominal pain [Unknown]
